FAERS Safety Report 24295405 (Version 1)
Quarter: 2024Q3

REPORT INFORMATION
  Report Type: Spontaneous
  Country: JP (occurrence: JP)
  Receive Date: 20240908
  Receipt Date: 20240908
  Transmission Date: 20241016
  Serious: Yes (Life-Threatening, Hospitalization)
  Sender: MACLEODS
  Company Number: JP-MACLEODS PHARMA-MAC2024049128

PATIENT

DRUGS (4)
  1. OLANZAPINE [Suspect]
     Active Substance: OLANZAPINE
     Indication: Depression
     Dosage: 20 TABLETS OF 2.5 MG EACH
     Route: 048
  2. VALPROIC ACID [Suspect]
     Active Substance: VALPROIC ACID
     Indication: Depression
     Dosage: 35,600 MG OF VALPROIC ACID (178 TABLETS OF 200 MG EACH)
     Route: 048
  3. CHLORPROMAZINE HYDROCHLORIDE [Concomitant]
     Active Substance: CHLORPROMAZINE HYDROCHLORIDE
     Indication: Depression
     Dosage: 2 TABLETS
     Route: 065
  4. FLUNITRAZEPAM [Concomitant]
     Active Substance: FLUNITRAZEPAM
     Indication: Depression
     Dosage: TWO TABLETS
     Route: 065

REACTIONS (14)
  - Pneumonia aspiration [Unknown]
  - Toxicity to various agents [Recovered/Resolved]
  - Diabetes insipidus [Recovered/Resolved]
  - Respiratory acidosis [Recovered/Resolved]
  - Cardiogenic shock [Recovered/Resolved]
  - Hypoxia [Recovered/Resolved]
  - Blood lactic acid increased [Recovered/Resolved]
  - Hypernatraemia [Unknown]
  - Somnolence [Recovered/Resolved]
  - Unresponsive to stimuli [Recovered/Resolved]
  - Altered state of consciousness [Recovered/Resolved]
  - Hypotension [Recovered/Resolved]
  - Polyuria [Recovered/Resolved]
  - Overdose [Recovered/Resolved]
